FAERS Safety Report 8914766 (Version 1)
Quarter: 2012Q4

REPORT INFORMATION
  Report Type: 
  Country: PH (occurrence: PH)
  Receive Date: 20121116
  Receipt Date: 20121116
  Transmission Date: 20130627
  Serious: Yes (Death)
  Sender: FDA-Public Use
  Company Number: PH-BAXTER-2012BAX023482

PATIENT
  Age: 7 Year
  Sex: Female

DRUGS (3)
  1. DIANEAL PD2 WITH 2.5% DEXTROSE [Suspect]
     Indication: CAPD
     Route: 033
     Dates: start: 20121030, end: 20121030
  2. DOPAMINE [Suspect]
     Indication: DRUG USE FOR UNKNOWN INDICATION
     Route: 065
  3. DOBUTAMINE [Suspect]
     Indication: DRUG USE FOR UNKNOWN INDICATION
     Route: 065

REACTIONS (1)
  - Cardio-respiratory arrest [Fatal]
